FAERS Safety Report 19727087 (Version 2)
Quarter: 2021Q4

REPORT INFORMATION
  Report Type: Report from Study
  Country: US (occurrence: US)
  Receive Date: 20210819
  Receipt Date: 20211018
  Transmission Date: 20220303
  Serious: Yes (Hospitalization, Other)
  Sender: FDA-Public Use
  Company Number: US-JNJFOC-20210823449

PATIENT
  Age: 45 Year
  Sex: Female

DRUGS (3)
  1. SELEXIPAG [Suspect]
     Active Substance: SELEXIPAG
     Indication: Product used for unknown indication
     Dosage: 1200 UG FOR 3 YEARS
     Route: 048
  2. ELIQUIS [Suspect]
     Active Substance: APIXABAN
     Indication: Product used for unknown indication
     Route: 065
  3. COUMADIN [Concomitant]
     Active Substance: WARFARIN SODIUM

REACTIONS (16)
  - Haemorrhage [Unknown]
  - Anaemia [Unknown]
  - Pulmonary oedema [Unknown]
  - Thrombosis [Unknown]
  - Pneumonia [Unknown]
  - Pericardial effusion [Unknown]
  - Abdominal pain upper [Unknown]
  - Cough [Unknown]
  - Breast mass [Unknown]
  - Nausea [Unknown]
  - Vomiting [Unknown]
  - Flatulence [Unknown]
  - Headache [Unknown]
  - Device expulsion [Unknown]
  - Hot flush [Unknown]
  - Erythema [Unknown]

NARRATIVE: CASE EVENT DATE: 20201101
